FAERS Safety Report 9941887 (Version 1)
Quarter: 2014Q1

REPORT INFORMATION
  Report Type: Report from Study
  Country: US (occurrence: US)
  Receive Date: 20140303
  Receipt Date: 20140303
  Transmission Date: 20141002
  Serious: No
  Sender: FDA-Public Use
  Company Number: US-ABBVIE-13P-163-1039948-00

PATIENT
  Age: 63 Year
  Sex: Male

DRUGS (7)
  1. HUMIRA [Suspect]
     Indication: RHEUMATOID ARTHRITIS
  2. ALLOPURINOL [Concomitant]
     Indication: GOUT
  3. BISOPROLOL/HCTZ [Concomitant]
     Indication: HYPERTENSION
  4. BISOPROLOL/HCTZ [Concomitant]
     Indication: ATRIAL FIBRILLATION
  5. VERAPAMIL [Concomitant]
     Indication: HYPERTENSION
  6. VERAPAMIL [Concomitant]
     Indication: ATRIAL FIBRILLATION
  7. NEXIUM [Concomitant]
     Indication: ULCER

REACTIONS (2)
  - Injection site pain [Recovered/Resolved]
  - Injection site haemorrhage [Unknown]
